FAERS Safety Report 8849239 (Version 1)
Quarter: 2012Q4

REPORT INFORMATION
  Report Type: Report from Study
  Country: NL (occurrence: NL)
  Receive Date: 20121019
  Receipt Date: 20121019
  Transmission Date: 20130627
  Serious: Yes (Other)
  Sender: FDA-Public Use
  Company Number: NL-US-EMD SERONO, INC.-7167816

PATIENT
  Sex: Female
  Weight: 85 kg

DRUGS (1)
  1. REBIF [Suspect]
     Indication: MULTIPLE SCLEROSIS
     Route: 058
     Dates: start: 2000, end: 20120924

REACTIONS (2)
  - Abdominal wall infection [Recovered/Resolved]
  - Injection site reaction [Not Recovered/Not Resolved]
